FAERS Safety Report 24201251 (Version 1)
Quarter: 2024Q3

REPORT INFORMATION
  Report Type: Report from Study
  Country: US (occurrence: US)
  Receive Date: 20240812
  Receipt Date: 20240812
  Transmission Date: 20241017
  Serious: Yes (Other)
  Sender: MYLAN
  Company Number: US-MYLANLABS-2024M1074351

PATIENT
  Age: 42 Year
  Sex: Male
  Weight: 86.18 kg

DRUGS (1)
  1. GLATIRAMER ACETATE [Suspect]
     Active Substance: GLATIRAMER ACETATE
     Indication: Multiple sclerosis
     Dosage: 40 MILLIGRAM
     Route: 058
     Dates: start: 20240623

REACTIONS (7)
  - Loss of consciousness [Unknown]
  - Apnoea [Unknown]
  - Syncope [Unknown]
  - Blood pressure decreased [Unknown]
  - Dizziness [Not Recovered/Not Resolved]
  - Orthostatic hypotension [Unknown]
  - Injection site pain [Not Recovered/Not Resolved]

NARRATIVE: CASE EVENT DATE: 20240623
